FAERS Safety Report 8861778 (Version 1)
Quarter: 2012Q4

REPORT INFORMATION
  Report Type: 
  Country: US (occurrence: US)
  Receive Date: 20121025
  Receipt Date: 20121025
  Transmission Date: 20130627
  Serious: No
  Sender: FDA-Public Use
  Company Number: US-AMGEN-USASP2012021459

PATIENT
  Age: 60 Year
  Sex: Male

DRUGS (24)
  1. ENBREL [Suspect]
     Indication: PRODUCT USED FOR UNKNOWN INDICATION
     Dosage: 50 mg, qwk
     Route: 058
  2. METHOTREXATE [Concomitant]
     Dosage: 2.5 mg, UNK
  3. VOLTAREN                           /00372301/ [Concomitant]
     Dosage: 1 %, UNK
  4. LIPITOR [Concomitant]
     Dosage: 10 mg, UNK
  5. SYNTHROID [Concomitant]
     Dosage: 25 mug, UNK
  6. NASONEX [Concomitant]
  7. ENALAPRIL [Concomitant]
     Dosage: 10 mg, UNK
  8. TOPROL [Concomitant]
     Dosage: 25 mg, UNK
  9. SULINDAC [Concomitant]
     Dosage: 150 mg, UNK
  10. PLAVIX [Concomitant]
     Dosage: 75 mg, UNK
  11. VITAMIN D3 [Concomitant]
     Dosage: 400 IU, UNK
  12. POTASSIUM [Concomitant]
     Dosage: 75 mg, UNK
  13. FISH OIL [Concomitant]
  14. CALCIUM [Concomitant]
  15. GLUCOSAMINE MSM [Concomitant]
  16. VITAMIN C                          /00008001/ [Concomitant]
     Dosage: 500 mg, UNK
  17. B12                                /00056201/ [Concomitant]
     Dosage: 1000 mug, UNK
  18. ASPIRIN [Concomitant]
     Dosage: 81 mg, UNK
  19. SAW PALMETTO                       /00833501/ [Concomitant]
  20. FOLIC ACID [Concomitant]
  21. NIACIN [Concomitant]
     Dosage: 400 mg, UNK
  22. MAGNESIUM [Concomitant]
     Dosage: 300 mg, UNK
  23. VITAMIN B6 [Concomitant]
     Dosage: 50 mg, UNK
  24. LANSOPRAZOLE [Concomitant]
     Dosage: 15 mg, UNK

REACTIONS (4)
  - Platelet count decreased [Unknown]
  - Injection site reaction [Recovering/Resolving]
  - Injection site pain [Recovering/Resolving]
  - Injection site bruising [Recovering/Resolving]
